FAERS Safety Report 23510887 (Version 6)
Quarter: 2025Q1

REPORT INFORMATION
  Report Type: Report from Study
  Country: DE (occurrence: DE)
  Receive Date: 20240212
  Receipt Date: 20250204
  Transmission Date: 20250409
  Serious: Yes (Hospitalization, Other)
  Sender: ABBVIE
  Company Number: DE-BRISTOL-MYERS SQUIBB COMPANY-2023-180691

PATIENT
  Age: 80 Year
  Sex: Female
  Weight: 49 kg

DRUGS (4)
  1. PREDNISOLONE [Suspect]
     Active Substance: PREDNISOLONE
     Indication: Product used for unknown indication
     Route: 065
  2. OPDIVO [Suspect]
     Active Substance: NIVOLUMAB
     Indication: Oesophageal squamous cell carcinoma
     Route: 042
     Dates: start: 20230918, end: 20231127
  3. YERVOY [Suspect]
     Active Substance: IPILIMUMAB
     Indication: Oesophageal squamous cell carcinoma
     Dosage: ONLY GIVEN ONCE
     Route: 042
     Dates: start: 20230918, end: 20230918
  4. YERVOY [Suspect]
     Active Substance: IPILIMUMAB
     Indication: Oesophageal squamous cell carcinoma
     Route: 065

REACTIONS (6)
  - Drug-induced liver injury [Not Recovered/Not Resolved]
  - Pyrexia [Recovered/Resolved]
  - Headache [Unknown]
  - Insomnia [Recovering/Resolving]
  - Prescribed overdose [Unknown]
  - Sinusitis [Recovered/Resolved with Sequelae]

NARRATIVE: CASE EVENT DATE: 20231027
